FAERS Safety Report 6671775-6 (Version None)
Quarter: 2010Q2

REPORT INFORMATION
  Report Type: 
  Country: None (occurrence: None)
  Receive Date: 20100407
  Receipt Date: 20100329
  Transmission Date: 20101027
  Serious: Yes (Other)
  Sender: FDA-Public Use
  Company Number: GB-PFIZER INC-2010039744

PATIENT
  Age: 68 Year
  Sex: Female

DRUGS (1)
  1. LIPITOR [Suspect]
     Dosage: 10 MG, ALTERNATE NIGHTS

REACTIONS (3)
  - BALANCE DISORDER [None]
  - JOINT STIFFNESS [None]
  - LIMB DISCOMFORT [None]
